FAERS Safety Report 5800735-X (Version None)
Quarter: 2008Q3

REPORT INFORMATION
  Report Type: 
  Country: None (occurrence: None)
  Receive Date: 20080701
  Receipt Date: 20080618
  Transmission Date: 20090109
  Serious: Yes (Hospitalization)
  Sender: FDA-Public Use
  Company Number: GXKR2008TW05663

PATIENT
  Age: 8 Year
  Sex: Female
  Weight: 36 kg

DRUGS (2)
  1. DEXAMETHASONE [Suspect]
     Indication: ADRENOGENITAL SYNDROME
     Dates: end: 20020601
  2. FLUDROCORTISONE ACETATE [Suspect]
     Indication: ADRENOGENITAL SYNDROME
     Dosage: 0.033 MG/KG, QD
     Dates: start: 19931207, end: 20020830

REACTIONS (8)
  - ARRHYTHMIA [None]
  - HYPERTENSION [None]
  - HYPOKALAEMIA [None]
  - METABOLIC ALKALOSIS [None]
  - RETINOPATHY HYPERTENSIVE [None]
  - TONIC CONVULSION [None]
  - VENTRICULAR EXTRASYSTOLES [None]
  - WITHDRAWAL SYNDROME [None]
